FAERS Safety Report 7617993-1 (Version None)
Quarter: 2011Q3

REPORT INFORMATION
  Report Type: 
  Country: None (occurrence: None)
  Receive Date: 20110718
  Receipt Date: 20110712
  Transmission Date: 20111222
  Serious: Yes (Death, Hospitalization)
  Sender: FDA-Public Use
  Company Number: PHHY2011US23196

PATIENT
  Sex: Female
  Weight: 41.73 kg

DRUGS (6)
  1. EXJADE [Suspect]
     Indication: MYELODYSPLASTIC SYNDROME
     Dosage: 125 MG, BID
     Route: 048
     Dates: start: 20101028
  2. EXJADE [Suspect]
     Indication: IRON OVERLOAD
  3. VITAMIN D [Concomitant]
  4. PREMARIN [Concomitant]
  5. TRAMADOL HCL [Concomitant]
  6. TYLENOL (CAPLET) [Concomitant]

REACTIONS (2)
  - DEATH [None]
  - PNEUMONIA [None]
